FAERS Safety Report 4550052-3 (Version None)
Quarter: 2005Q1

REPORT INFORMATION
  Report Type: 
  Country: None (occurrence: None)
  Receive Date: 20050110
  Receipt Date: 20041228
  Transmission Date: 20050727
  Serious: Yes (Other)
  Sender: FDA-Public Use
  Company Number: 2002055047

PATIENT
  Sex: Male
  Weight: 110.6777 kg

DRUGS (8)
  1. NAVANE [Suspect]
     Indication: DELUSION
     Dosage: 4 MG (DAILY), ORAL
     Route: 048
     Dates: start: 20010101
  2. NAVANE [Suspect]
     Indication: HALLUCINATION
     Dosage: 4 MG (DAILY), ORAL
     Route: 048
     Dates: start: 20010101
  3. NAVANE [Suspect]
     Indication: SCHIZOPHRENIA, PARANOID TYPE
     Dosage: 4 MG (DAILY), ORAL
     Route: 048
     Dates: start: 20010101
  4. RISPERDAL [Suspect]
     Indication: PSYCHOTIC DISORDER
     Dosage: 1 MG (DAILY), UNKNOWN
     Route: 065
  5. ALL OTHER NON-THERAPEUTIC PRODUCTS (ALL OTHER NON-THERAPEUTIC PRODUCTS [Suspect]
     Indication: ILL-DEFINED DISORDER
     Dosage: UNK
     Route: 065
  6. DIPHENHYDRAMINE (DIPHENHYDRAMINE) [Concomitant]
  7. LANSOPRAZOLE [Concomitant]
  8. HYDROXYZINE EMBONATE (HYDROXYZINE EMBONATE) [Concomitant]

REACTIONS (34)
  - AGITATION [None]
  - BALANCE DISORDER [None]
  - DELUSION [None]
  - DERMATITIS CONTACT [None]
  - DIPLOPIA [None]
  - DIZZINESS [None]
  - DRUG DEPENDENCE [None]
  - DYSPNOEA [None]
  - EAR CONGESTION [None]
  - FALL [None]
  - GENERAL PHYSICAL HEALTH DETERIORATION [None]
  - HALLUCINATION [None]
  - HEART RATE INCREASED [None]
  - HEPATIC ENZYME INCREASED [None]
  - HEPATIC STEATOSIS [None]
  - HEPATOMEGALY [None]
  - HYPERHIDROSIS [None]
  - LIVER DISORDER [None]
  - MALAISE [None]
  - MUSCLE TWITCHING [None]
  - MUSCULOSKELETAL STIFFNESS [None]
  - NASAL CONGESTION [None]
  - NASAL POLYPS [None]
  - PHOTOSENSITIVITY REACTION [None]
  - RESTLESSNESS [None]
  - SCAR [None]
  - SINUS CONGESTION [None]
  - SINUSITIS [None]
  - SOMNOLENCE [None]
  - STOMACH DISCOMFORT [None]
  - TINNITUS [None]
  - TREMOR [None]
  - VISION BLURRED [None]
  - VISUAL DISTURBANCE [None]
